FAERS Safety Report 4963164-7 (Version None)
Quarter: 2006Q2

REPORT INFORMATION
  Report Type: 
  Country: None (occurrence: None)
  Receive Date: 20060405
  Receipt Date: 20050928
  Transmission Date: 20061013
  Serious: Yes (Hospitalization)
  Sender: FDA-Public Use
  Company Number: US-MERCK-0509USA04905

PATIENT
  Age: 64 Year
  Sex: Male
  Weight: 73 kg

DRUGS (2)
  1. VIOXX [Suspect]
     Indication: ARTHRALGIA
     Route: 048
     Dates: start: 20030106, end: 20040930
  2. VIOXX [Suspect]
     Route: 048
     Dates: start: 20030106, end: 20040930

REACTIONS (5)
  - ARTHROPATHY [None]
  - DEPRESSION [None]
  - GALLBLADDER DISORDER [None]
  - ISCHAEMIC STROKE [None]
  - URINARY TRACT DISORDER [None]
